FAERS Safety Report 6291531-0 (Version None)
Quarter: 2009Q3

REPORT INFORMATION
  Report Type: 
  Country: None (occurrence: None)
  Receive Date: 20090730
  Receipt Date: 20090717
  Transmission Date: 20100115
  Serious: Yes (Hospitalization)
  Sender: FDA-Public Use
  Company Number: US-ELI_LILLY_AND_COMPANY-US200907004014

PATIENT
  Age: 64 Year
  Sex: Male

DRUGS (19)
  1. ZYPREXA [Suspect]
     Indication: SCHIZOPHRENIA, PARANOID TYPE
     Dosage: 5 MG, EACH MORNING
  2. ZYPREXA [Suspect]
     Dosage: 10 MG, EACH EVENING
  3. LITHIUM CARBONATE [Concomitant]
     Indication: SCHIZOPHRENIA, PARANOID TYPE
     Dosage: 1200 MG, UNK
  4. LITHIUM CARBONATE [Concomitant]
     Dosage: 900 MG, UNK
  5. LITHIUM CARBONATE [Concomitant]
     Dosage: 600 MG, UNK
  6. LITHIUM CARBONATE [Concomitant]
     Dosage: 150 MG, 2/D
  7. LITHIUM CARBONATE [Concomitant]
     Dosage: 150 MG, UNK
  8. PRILOSEC [Concomitant]
  9. SINEMET [Concomitant]
  10. GLUCOPHAGE [Concomitant]
  11. REMERON [Concomitant]
  12. COREG [Concomitant]
  13. LISINOPRIL [Concomitant]
  14. PLETAL [Concomitant]
  15. PRAVACHOL [Concomitant]
  16. MINIPRESS [Concomitant]
  17. LYRICA [Concomitant]
     Dosage: 100 MG, 3/D
  18. LORTAB [Concomitant]
  19. MICARDIS [Concomitant]

REACTIONS (4)
  - ANTIPSYCHOTIC DRUG LEVEL ABOVE THERAPEUTIC [None]
  - DRUG INEFFECTIVE [None]
  - DYSKINESIA [None]
  - TIC [None]
